FAERS Safety Report 18695858 (Version 1)
Quarter: 2021Q1

REPORT INFORMATION
  Report Type: Spontaneous
  Country: AT (occurrence: AT)
  Receive Date: 20210104
  Receipt Date: 20210104
  Transmission Date: 20210419
  Serious: Yes (Other)
  Sender: FDA-Public Use
  Company Number: AT-PURDUE-USA-2020-0194414

PATIENT
  Age: 22 Year
  Sex: Male

DRUGS (1)
  1. SUBSTITOL [Suspect]
     Active Substance: MORPHINE SULFATE
     Indication: PRODUCT USED FOR UNKNOWN INDICATION
     Dosage: UNK
     Route: 065

REACTIONS (3)
  - Mental disorder [Unknown]
  - Drug diversion [Unknown]
  - Suicidal ideation [Unknown]
